FAERS Safety Report 18995983 (Version 1)
Quarter: 2021Q1

REPORT INFORMATION
  Report Type: Other
  Country: US (occurrence: US)
  Receive Date: 20210311
  Receipt Date: 20210311
  Transmission Date: 20210420
  Serious: Yes (Hospitalization, Other)
  Sender: FDA-Public Use
  Company Number: US-ROCHE-2168586

PATIENT
  Age: 68 Year
  Sex: Female
  Weight: 61.29 kg

DRUGS (7)
  1. OCREVUS [Suspect]
     Active Substance: OCRELIZUMAB
     Indication: PRIMARY PROGRESSIVE MULTIPLE SCLEROSIS
     Dosage: NEXT DOSE ON 26/JUL/2018, 31/JAN/2019, 01/AUG/2019, 04/FEB/2020, 05/AUG/2020
     Route: 042
     Dates: start: 201707
  2. BIOTIN [Concomitant]
     Active Substance: BIOTIN
     Indication: PRODUCT USED FOR UNKNOWN INDICATION
     Dosage: STRTED A COUPLE OF MONTHS AGO2 AM 1PM.
     Route: 048
     Dates: start: 2018
  3. ALPHA LIPOIC ACID [Concomitant]
     Active Substance: .ALPHA.-LIPOIC ACID
     Indication: PRODUCT USED FOR UNKNOWN INDICATION
     Dosage: 1 AM 1 PM
     Route: 048
     Dates: start: 2018
  4. FISH OIL [Concomitant]
     Active Substance: FISH OIL
  5. BABY ASPIRIN [Concomitant]
     Active Substance: ASPIRIN
  6. SIMVASTATIN. [Concomitant]
     Active Substance: SIMVASTATIN
  7. FLAXSEED [Concomitant]
     Active Substance: FLAX SEED

REACTIONS (13)
  - Pain in extremity [Not Recovered/Not Resolved]
  - Contusion [Unknown]
  - Memory impairment [Not Recovered/Not Resolved]
  - Hypoaesthesia [Not Recovered/Not Resolved]
  - Paraesthesia [Not Recovered/Not Resolved]
  - Gait disturbance [Not Recovered/Not Resolved]
  - Balance disorder [Not Recovered/Not Resolved]
  - Muscular weakness [Not Recovered/Not Resolved]
  - Pneumonia [Not Recovered/Not Resolved]
  - Fall [Unknown]
  - Aspiration [Recovered/Resolved]
  - Intentional product use issue [Unknown]
  - Off label use [Unknown]

NARRATIVE: CASE EVENT DATE: 201807
